FAERS Safety Report 6666795-1 (Version None)
Quarter: 2010Q2

REPORT INFORMATION
  Report Type: 
  Country: None (occurrence: None)
  Receive Date: 20100405
  Receipt Date: 20100323
  Transmission Date: 20101027
  Serious: Yes (Other)
  Sender: FDA-Public Use
  Company Number: FR-JNJFOC-20100112319

PATIENT
  Age: 19 Year
  Sex: Male

DRUGS (6)
  1. TAVANIC [Suspect]
     Indication: BRONCHITIS
     Route: 048
  2. CEFPODOXIME PROXETIL [Concomitant]
     Indication: BRONCHITIS
     Route: 065
  3. LAMOTRIGINE [Concomitant]
     Indication: EPILEPSY
     Route: 065
  4. PNEUMOREL [Concomitant]
     Route: 065
  5. FLUTICASONE PROPIONATE / SALMETEROL [Concomitant]
     Route: 065
  6. DOLIPRANE [Concomitant]
     Route: 065

REACTIONS (2)
  - CONTRAINDICATION TO MEDICAL TREATMENT [None]
  - EPILEPSY [None]
